FAERS Safety Report 5525786-4 (Version None)
Quarter: 2007Q4

REPORT INFORMATION
  Report Type: 
  Country: None (occurrence: None)
  Receive Date: 20071120
  Receipt Date: 20071112
  Transmission Date: 20080405
  Serious: Yes (Life-Threatening)
  Sender: FDA-Public Use
  Company Number: 2007AL004792

PATIENT
  Age: 45 Year
  Sex: Male

DRUGS (5)
  1. BACITRACIN ZINC [Suspect]
     Indication: SKIN LACERATION
     Dosage: TOP
     Route: 061
  2. EXCEDRIN (MIGRAINE) [Concomitant]
  3. ASCORBIC ACID [Concomitant]
  4. CHONDROITIN SULFATE [Concomitant]
  5. GLUCOSAMINE [Concomitant]

REACTIONS (1)
  - ANAPHYLACTIC REACTION [None]
